FAERS Safety Report 7491264-9 (Version None)
Quarter: 2011Q2

REPORT INFORMATION
  Report Type: 
  Country: None (occurrence: None)
  Receive Date: 20110519
  Receipt Date: 20110513
  Transmission Date: 20111010
  Serious: Yes (Other)
  Sender: FDA-Public Use
  Company Number: A0927309A

PATIENT
  Age: 68 Year
  Sex: Female

DRUGS (4)
  1. LOVAZA [Suspect]
     Dosage: 2CAP TWICE PER DAY
     Route: 048
     Dates: start: 20100101
  2. DIABETES MEDICATION [Concomitant]
  3. ASPIRIN [Suspect]
     Indication: PROPHYLAXIS
     Dosage: 81MG PER DAY
     Route: 048
     Dates: start: 20090101
  4. CONCURRENT MEDICATIONS [Concomitant]

REACTIONS (3)
  - HAEMORRHAGE [None]
  - FALL [None]
  - HAEMATOMA [None]
